FAERS Safety Report 6129551-9 (Version None)
Quarter: 2009Q1

REPORT INFORMATION
  Report Type: 
  Country: None (occurrence: None)
  Receive Date: 20090324
  Receipt Date: 20090311
  Transmission Date: 20090719
  Serious: Yes (Hospitalization, Other)
  Sender: FDA-Public Use
  Company Number: US-PFIZER INC-2009182620

PATIENT
  Sex: Female

DRUGS (5)
  1. MECLIZINE HCL [Suspect]
     Indication: TINNITUS
  2. TRAZODONE HCL [Suspect]
     Indication: DEPRESSION
  3. TRAMADOL HCL [Suspect]
     Indication: BACK PAIN
  4. INTERFERON ALFA-2A [Suspect]
     Indication: HEPATITIS C
     Dosage: 180 UG, WEEKLY
     Dates: start: 20090107, end: 20090119
  5. LEXAPRO [Suspect]
     Indication: DEPRESSION

REACTIONS (2)
  - BLADDER NEOPLASM [None]
  - HYPERSENSITIVITY [None]
